FAERS Safety Report 5431362-4 (Version None)
Quarter: 2007Q3

REPORT INFORMATION
  Report Type: 
  Country: None (occurrence: None)
  Receive Date: 20070830
  Receipt Date: 20070725
  Transmission Date: 20080115
  Serious: No
  Sender: FDA-Public Use
  Company Number: A0650493A

PATIENT
  Age: 54 Year
  Sex: Female

DRUGS (4)
  1. WELLBUTRIN XL [Suspect]
     Dosage: 150MG PER DAY
     Route: 048
     Dates: start: 20070404, end: 20070507
  2. HYDROCHLOROTHIAZIDE [Suspect]
     Dosage: 12.5MG PER DAY
     Route: 048
     Dates: start: 20070425
  3. AVALIDE [Suspect]
     Dosage: 300MG PER DAY
     Route: 048
     Dates: start: 20070325
  4. RANITIDINE [Concomitant]

REACTIONS (4)
  - DYSPEPSIA [None]
  - HEART RATE INCREASED [None]
  - MALAISE [None]
  - PALPITATIONS [None]
